FAERS Safety Report 6578390-3 (Version None)
Quarter: 2010Q1

REPORT INFORMATION
  Report Type: 
  Country: None (occurrence: None)
  Receive Date: 20100211
  Receipt Date: 20100201
  Transmission Date: 20100710
  Serious: Yes (Hospitalization, Other)
  Sender: FDA-Public Use
  Company Number: GB-ABBOTT-06P-167-0334785-00

PATIENT
  Age: 65 Year
  Sex: Female

DRUGS (7)
  1. CLARITHROMYCIN [Suspect]
     Indication: HELICOBACTER INFECTION
     Dates: start: 19970101, end: 19970101
  2. ZOTON CAPSULES [Suspect]
     Indication: HELICOBACTER INFECTION
     Dates: start: 19970101, end: 19970101
  3. METRONIDAZOLE [Suspect]
     Indication: HELICOBACTER INFECTION
     Dates: start: 19970101, end: 19970101
  4. ACETAMINOPHEN WITH PROPOXYPHENE HCL TAB [Concomitant]
     Indication: DRUG USE FOR UNKNOWN INDICATION
  5. AZATHIOPRINE [Concomitant]
     Indication: RHEUMATOID ARTHRITIS
  6. AZATHIOPRINE [Concomitant]
  7. DEXTROPROPOXYPHENE [Concomitant]
     Indication: DRUG USE FOR UNKNOWN INDICATION

REACTIONS (16)
  - ACTIVATED PARTIAL THROMBOPLASTIN TIME [None]
  - ACTIVATED PARTIAL THROMBOPLASTIN TIME PROLONGED [None]
  - AGRANULOCYTOSIS [None]
  - BONE MARROW FAILURE [None]
  - DECREASED APPETITE [None]
  - DRY MOUTH [None]
  - DYSPHAGIA [None]
  - INTERNATIONAL NORMALISED RATIO INCREASED [None]
  - NEUTROPHIL COUNT DECREASED [None]
  - OROPHARYNGEAL CANDIDIASIS [None]
  - PANCYTOPENIA [None]
  - PHARYNGITIS [None]
  - PLATELET COUNT DECREASED [None]
  - PYREXIA [None]
  - URINARY TRACT INFECTION [None]
  - WEIGHT DECREASED [None]
